FAERS Safety Report 21818626 (Version 1)
Quarter: 2023Q1

REPORT INFORMATION
  Report Type: Spontaneous
  Country: US (occurrence: US)
  Receive Date: 20230104
  Receipt Date: 20230104
  Transmission Date: 20230417
  Serious: No
  Sender: FDA-Public Use
  Company Number: US-INTERCEPT-PM2022002041

PATIENT
  Age: 39 Year
  Sex: Female

DRUGS (1)
  1. OCALIVA [Suspect]
     Active Substance: OBETICHOLIC ACID
     Indication: Primary biliary cholangitis
     Dosage: UNK
     Route: 048

REACTIONS (3)
  - Blister [Unknown]
  - Pain [Unknown]
  - Rash [Unknown]

NARRATIVE: CASE EVENT DATE: 20220617
